FAERS Safety Report 10073240 (Version 2)
Quarter: 2014Q2

REPORT INFORMATION
  Report Type: Spontaneous
  Country: US (occurrence: US)
  Receive Date: 20140411
  Receipt Date: 20140609
  Transmission Date: 20141212
  Serious: Yes (Death, Hospitalization)
  Sender: FDA-Public Use
  Company Number: US-GLAXOSMITHKLINE-A1068474A

PATIENT
  Age: 64 Year
  Sex: Male

DRUGS (5)
  1. COREG CR [Suspect]
     Indication: HEART RATE IRREGULAR
     Dosage: 10MG UNKNOWN
     Route: 065
     Dates: start: 20110819
  2. CHEMOTHERAPY [Concomitant]
  3. NEXIUM [Concomitant]
  4. DIOVAN [Concomitant]
  5. HYDROCODONE [Concomitant]

REACTIONS (1)
  - Colon cancer [Fatal]
